FAERS Safety Report 4360723-X (Version None)
Quarter: 2004Q2

REPORT INFORMATION
  Report Type: 
  Country: None (occurrence: None)
  Receive Date: 20040514
  Receipt Date: 20040430
  Transmission Date: 20050107
  Serious: Yes (Death, Life-Threatening, Hospitalization)
  Sender: FDA-Public Use
  Company Number: 6007468

PATIENT
  Sex: Male

DRUGS (6)
  1. BISOPROLOL FUMARATE [Suspect]
     Indication: CARDIAC FAILURE CONGESTIVE
     Dosage: 5MG (5MG, 1 IN 1 D); ORAL
     Route: 048
     Dates: start: 20030730, end: 20040202
  2. ENALAPRIL 2.5 MG TABLETS (ENALAPRIL) [Suspect]
     Indication: CARDIAC FAILURE CONGESTIVE
     Dosage: 5 MG (2,5 MG, 2 IN 1 D), ORAL
     Route: 048
     Dates: start: 20040202
  3. ACETYLSALICYLIC ACID SRT [Concomitant]
  4. FUROSEMIDE [Concomitant]
  5. DIGOXIN [Concomitant]
  6. SPIRONOLACTONE [Concomitant]

REACTIONS (26)
  - AORTO-ILIAC ARTERIAL STENOSIS [None]
  - ATHEROSCLEROSIS [None]
  - BRAIN OEDEMA [None]
  - BRONCHOPNEUMONIA [None]
  - CARDIAC FAILURE [None]
  - CEREBRAL ATHEROSCLEROSIS [None]
  - CHRONIC OBSTRUCTIVE AIRWAYS DISEASE [None]
  - CONDITION AGGRAVATED [None]
  - CORONARY ARTERY ATHEROSCLEROSIS [None]
  - DISEASE PROGRESSION [None]
  - ENCEPHALOMALACIA [None]
  - HEART RATE INCREASED [None]
  - HEPATIC CONGESTION [None]
  - HEPATITIS [None]
  - HYDROTHORAX [None]
  - HYPOTENSION [None]
  - PLEURAL ADHESION [None]
  - PLEURISY [None]
  - PNEUMOCONIOSIS [None]
  - PULMONARY EMBOLISM [None]
  - PULMONARY OEDEMA [None]
  - PURULENCE [None]
  - PYELONEPHRITIS [None]
  - RESPIRATORY FAILURE [None]
  - SHOCK [None]
  - SILICOSIS [None]
